FAERS Safety Report 5695041-0 (Version None)
Quarter: 2008Q2

REPORT INFORMATION
  Report Type: 
  Country: None (occurrence: None)
  Receive Date: 20080404
  Receipt Date: 20080201
  Transmission Date: 20081010
  Serious: Yes (Death, Life-Threatening, Hospitalization)
  Sender: FDA-Public Use
  Company Number: DE-SANOFI-SYNTHELABO-A01200801151

PATIENT
  Sex: Female

DRUGS (27)
  1. DUOVENT [Suspect]
     Indication: CHRONIC OBSTRUCTIVE PULMONARY DISEASE
     Route: 065
     Dates: start: 20030412, end: 20030416
  2. CORNERGEL [Suspect]
     Indication: CONJUNCTIVITIS
     Route: 065
     Dates: start: 20030412, end: 20030416
  3. REPETIN [Suspect]
     Indication: PRURITUS
     Route: 065
     Dates: start: 20030410, end: 20030416
  4. HEPARIN-FRACTION, SODIUM SALT [Suspect]
     Indication: THROMBOSIS PROPHYLAXIS
     Dosage: 0.4 ML
     Route: 058
     Dates: start: 20030409, end: 20030416
  5. FEXOFENADINE [Suspect]
     Indication: DERMATITIS
     Route: 065
     Dates: start: 20030409, end: 20030410
  6. VALPROATE SODIUM [Suspect]
     Indication: EPILEPSY
     Route: 065
  7. PREDNISOLONE [Suspect]
     Indication: DERMATITIS
     Dosage: UNK
     Route: 065
     Dates: start: 20030320, end: 20030411
  8. DIGOXIN [Suspect]
     Indication: SUPRAVENTRICULAR TACHYCARDIA
     Route: 065
     Dates: start: 20030314, end: 20030416
  9. PHENPROCOUMON [Suspect]
     Indication: THROMBOSIS PROPHYLAXIS
     Dosage: SOME DOSAGE FORMS DAILY
     Route: 065
     Dates: start: 20030314, end: 20030406
  10. MELPERONE HYDROCHLORIDE [Suspect]
     Indication: SLEEP DISORDER
     Dosage: UNK
     Route: 065
     Dates: start: 20030327, end: 20030330
  11. SALMETEROL XINAFOATE [Suspect]
     Indication: CHRONIC OBSTRUCTIVE PULMONARY DISEASE
     Route: 055
     Dates: start: 20030327, end: 20030329
  12. BUDESONIDE [Suspect]
     Indication: CHRONIC OBSTRUCTIVE PULMONARY DISEASE
     Route: 055
     Dates: start: 20030301, end: 20030329
  13. BUDESONIDE [Suspect]
     Route: 055
     Dates: start: 20030327, end: 20030301
  14. CLONAZEPAM [Suspect]
     Indication: GRAND MAL CONVULSION
     Dosage: UNK
     Route: 065
     Dates: start: 20030331, end: 20030409
  15. CARBAMAZEPINE [Suspect]
     Indication: GRAND MAL CONVULSION
     Route: 065
     Dates: start: 20030201, end: 20030416
  16. DIAZEPAM [Suspect]
     Indication: GRAND MAL CONVULSION
     Dosage: UNK
     Route: 065
     Dates: start: 20030313, end: 20030409
  17. METOCLOPRAMIDE [Suspect]
     Indication: NAUSEA
     Dosage: UNK
     Route: 065
     Dates: start: 20030409
  18. METOCLOPRAMIDE [Suspect]
     Indication: VOMITING
     Dosage: UNK
     Route: 065
     Dates: start: 20030409
  19. CLOPIDOGREL [Suspect]
     Indication: THROMBOSIS PROPHYLAXIS
     Dosage: UNK
     Route: 065
     Dates: start: 20030225, end: 20030101
  20. CLOBAZAM [Suspect]
     Indication: EPILEPSY
     Dosage: UNK
     Route: 065
     Dates: start: 20030416, end: 20030101
  21. DYTIDE [Suspect]
     Indication: ESSENTIAL HYPERTENSION
     Route: 065
     Dates: start: 20030314, end: 20030101
  22. THEOPHYLLINE [Suspect]
     Indication: DRUG USE FOR UNKNOWN INDICATION
     Route: 065
     Dates: start: 20030314, end: 20030101
  23. DIGITOXIN INJ [Suspect]
     Indication: SUPRAVENTRICULAR TACHYCARDIA
     Dosage: UNK
     Route: 065
     Dates: start: 20030304, end: 20030101
  24. CLEMASTINE FUMARATE [Suspect]
     Indication: DERMATITIS
     Dosage: UNK
     Route: 048
     Dates: start: 20030403, end: 20030409
  25. ISOPTIN [Suspect]
     Indication: SUPRAVENTRICULAR TACHYCARDIA
     Dosage: 1.5 DF
     Route: 065
     Dates: start: 20030301, end: 20030331
  26. ISOPTIN [Suspect]
     Route: 065
     Dates: start: 20030314, end: 20030301
  27. PANTOZOL [Suspect]
     Indication: DRUG USE FOR UNKNOWN INDICATION
     Route: 065
     Dates: start: 20030314, end: 20030101

REACTIONS (8)
  - GENERALISED ERYTHEMA [None]
  - MUCOSAL EROSION [None]
  - NIKOLSKY'S SIGN [None]
  - PAIN OF SKIN [None]
  - PRURITUS [None]
  - SKIN LESION [None]
  - STEVENS-JOHNSON SYNDROME [None]
  - TOXIC EPIDERMAL NECROLYSIS [None]
